FAERS Safety Report 13472817 (Version 3)
Quarter: 2017Q2

REPORT INFORMATION
  Report Type: Spontaneous
  Country: SD (occurrence: SD)
  Receive Date: 20170424
  Receipt Date: 20170427
  Transmission Date: 20170830
  Serious: Yes (Death, Other)
  Sender: FDA-Public Use
  Company Number: SD-PFIZER INC-2017174199

PATIENT
  Sex: Male

DRUGS (1)
  1. VIAGRA [Suspect]
     Active Substance: SILDENAFIL CITRATE
     Dosage: 100 MG, UNK

REACTIONS (3)
  - Skin discolouration [Unknown]
  - Choking [Fatal]
  - Penile swelling [Unknown]

NARRATIVE: CASE EVENT DATE: 201704
